FAERS Safety Report 8282735 (Version 6)
Quarter: 2013Q4

REPORT INFORMATION
  Report Type: Spontaneous
  Country: JP (occurrence: JP)
  Receive Date: 20111209
  Receipt Date: 20131106
  Transmission Date: 20140711
  Serious: Yes (Hospitalization)
  Sender: FDA-Public Use
  Company Number: JP-009507513-1112USA00682

PATIENT
  Age: 67 Year
  Sex: Female
  Weight: 56 kg

DRUGS (10)
  1. JANUVIA TABLETS 50MG [Suspect]
     Indication: TYPE 2 DIABETES MELLITUS
     Dosage: 50 MG, QD
     Route: 048
     Dates: start: 20111021, end: 20111103
  2. OLMETEC [Suspect]
     Indication: HYPERTENSION
     Dosage: 20 MG, QD
     Route: 048
     Dates: start: 20080512, end: 20111103
  3. OLMETEC [Suspect]
     Dosage: 20 MG, QD
     Route: 048
     Dates: start: 20111201
  4. OLMETEC [Suspect]
     Dosage: UNK
  5. CRESTOR [Suspect]
     Indication: DYSLIPIDAEMIA
     Dosage: 2.5 MG, QD
     Route: 048
     Dates: start: 20080514, end: 20111103
  6. CRESTOR [Suspect]
     Dosage: 2.5 MG, QD
     Route: 048
     Dates: start: 20111201
  7. CRESTOR [Suspect]
     Dosage: UNK
  8. CALBLOCK [Suspect]
     Indication: HYPERTENSION
     Dosage: 16 MG, QD
     Route: 048
     Dates: start: 20090219, end: 20111103
  9. NOVORAPID [Suspect]
     Indication: TYPE 2 DIABETES MELLITUS
     Dosage: 4 IU, TID
     Route: 058
     Dates: start: 20080502, end: 20111112
  10. LEVEMIR [Suspect]
     Indication: TYPE 2 DIABETES MELLITUS
     Dosage: 8 IU, QD
     Route: 058
     Dates: start: 20080502, end: 20111112

REACTIONS (2)
  - Drug eruption [Recovered/Resolved]
  - Atrial fibrillation [Not Recovered/Not Resolved]
